FAERS Safety Report 4896212-3 (Version None)
Quarter: 2006Q1

REPORT INFORMATION
  Report Type: 
  Country: None (occurrence: None)
  Receive Date: 20060126
  Receipt Date: 20060113
  Transmission Date: 20060701
  Serious: Yes (Hospitalization)
  Sender: FDA-Public Use
  Company Number: 2006008550

PATIENT
  Age: 54 Year
  Sex: Male
  Weight: 72.5755 kg

DRUGS (9)
  1. LIPITOR [Suspect]
     Indication: BLOOD CHOLESTEROL INCREASED
     Dosage: 10 MG (10 MG, 1 IN 1 D)
     Dates: start: 20040101, end: 20050301
  2. ADVAIR DISKUS 100/50 [Concomitant]
  3. CLARITIN [Concomitant]
  4. ALBUTEROL [Concomitant]
  5. SINGULAIR ^MERCK^ (MONTELUKAST SODIUM) [Concomitant]
  6. ALL OTHER THERAPEUTIC PRODUCTS (ALL OTHER THERAPEUTIC PRODUCTS) [Concomitant]
  7. GLYBURIDE [Concomitant]
  8. METFORMIN HCL [Concomitant]
  9. AVANDIA [Concomitant]

REACTIONS (5)
  - ASTHMA [None]
  - DRUG DOSE OMISSION [None]
  - ECONOMIC PROBLEM [None]
  - LOWER RESPIRATORY TRACT INFECTION [None]
  - POST PROCEDURAL COMPLICATION [None]
